FAERS Safety Report 23124753 (Version 8)
Quarter: 2024Q2

REPORT INFORMATION
  Report Type: Report from Study
  Country: CO (occurrence: CO)
  Receive Date: 20231030
  Receipt Date: 20240424
  Transmission Date: 20240715
  Serious: Yes (Other)
  Sender: FDA-Public Use
  Company Number: CO-TAKEDA-2019TUS073079

PATIENT
  Age: 31 Year
  Sex: Female
  Weight: 58 kg

DRUGS (6)
  1. VEDOLIZUMAB [Suspect]
     Active Substance: VEDOLIZUMAB
     Indication: Colitis ulcerative
     Dosage: 300 MILLIGRAM, Q6WEEKS
     Route: 042
     Dates: start: 20190730
  2. VEDOLIZUMAB [Suspect]
     Active Substance: VEDOLIZUMAB
     Dosage: 300 MILLIGRAM
     Route: 042
  3. VEDOLIZUMAB [Suspect]
     Active Substance: VEDOLIZUMAB
     Dosage: 300 MILLIGRAM
     Route: 042
  4. MESALAMINE [Suspect]
     Active Substance: MESALAMINE
     Indication: Product used for unknown indication
     Dosage: 100 MILLIGRAM, QD
     Route: 048
  5. MESALAMINE [Suspect]
     Active Substance: MESALAMINE
     Dosage: UNK UNK, QD
     Route: 054
  6. PREDNISOLONE [Concomitant]
     Active Substance: PREDNISOLONE

REACTIONS (20)
  - Haematochezia [Recovering/Resolving]
  - Anal injury [Unknown]
  - Colitis [Recovering/Resolving]
  - Colitis ulcerative [Recovering/Resolving]
  - Rectal abscess [Unknown]
  - Anal fistula infection [Recovering/Resolving]
  - Off label use [Unknown]
  - Treatment failure [Unknown]
  - Weight decreased [Unknown]
  - Infection [Unknown]
  - Influenza [Unknown]
  - Large intestine polyp [Not Recovered/Not Resolved]
  - Weight increased [Unknown]
  - Gait disturbance [Unknown]
  - Diarrhoea [Unknown]
  - Frequent bowel movements [Unknown]
  - Anal fistula [Recovering/Resolving]
  - Proctalgia [Recovering/Resolving]
  - Abdominal pain [Recovering/Resolving]
  - Arthralgia [Unknown]

NARRATIVE: CASE EVENT DATE: 20200318
